FAERS Safety Report 14770622 (Version 1)
Quarter: 2018Q2

REPORT INFORMATION
  Report Type: Spontaneous
  Country: US (occurrence: US)
  Receive Date: 20180417
  Receipt Date: 20180417
  Transmission Date: 20180711
  Serious: Yes (Congenital Anomaly, Other)
  Sender: FDA-Public Use
  Company Number: US-MYLANLABS-2018M1023586

PATIENT
  Age: 18 Week

DRUGS (1)
  1. INDOMETACIN [Suspect]
     Active Substance: INDOMETHACIN
     Indication: POSTPONEMENT OF PRETERM DELIVERY
     Route: 064

REACTIONS (7)
  - Right ventricular hypertrophy [Recovered/Resolved]
  - Right ventricular dysfunction [Recovered/Resolved]
  - Congenital tricuspid valve incompetence [Recovering/Resolving]
  - Right ventricular hypertension [Recovered/Resolved]
  - Right atrial dilatation [Recovered/Resolved]
  - Ductus arteriosus premature closure [Recovered/Resolved]
  - Foetal exposure during pregnancy [Recovered/Resolved]
